FAERS Safety Report 23359239 (Version 1)
Quarter: 2024Q1

REPORT INFORMATION
  Report Type: Spontaneous
  Country: US (occurrence: US)
  Receive Date: 20240102
  Receipt Date: 20240102
  Transmission Date: 20240410
  Serious: Yes (Life-Threatening, Other)
  Sender: FDA-Public Use
  Company Number: US-BAXTER-2023BAX039350

PATIENT
  Age: 49 Year
  Sex: Female

DRUGS (1)
  1. DEXMEDETOMIDINE [Suspect]
     Active Substance: DEXMEDETOMIDINE
     Dosage: LOW DOSE INFUSION
     Route: 065

REACTIONS (5)
  - Torsade de pointes [Unknown]
  - Electrocardiogram abnormal [Unknown]
  - Electrocardiogram QT prolonged [Recovering/Resolving]
  - Ventricular fibrillation [Unknown]
  - Cardiac arrest [Unknown]
